FAERS Safety Report 9786863 (Version 1)
Quarter: 2013Q4

REPORT INFORMATION
  Report Type: Spontaneous
  Country: US (occurrence: US)
  Receive Date: 20131227
  Receipt Date: 20131227
  Transmission Date: 20140711
  Serious: No
  Sender: FDA-Public Use
  Company Number: US-009507513-1312USA009086

PATIENT
  Age: 37 Year
  Sex: Female

DRUGS (2)
  1. CLARITIN-D-12 [Suspect]
     Indication: SINUS HEADACHE
     Dosage: UNK, UNKNOWN
     Route: 048
  2. CLARITIN-D-12 [Suspect]
     Indication: SEASONAL ALLERGY

REACTIONS (1)
  - Insomnia [Unknown]
